FAERS Safety Report 9523335 (Version 1)
Quarter: 2013Q3

REPORT INFORMATION
  Report Type: Spontaneous
  Country: US (occurrence: US)
  Receive Date: 20130913
  Receipt Date: 20130913
  Transmission Date: 20140515
  Serious: No
  Sender: FDA-Public Use
  Company Number: US-009507513-1309USA005769

PATIENT
  Sex: 0

DRUGS (1)
  1. CLARITIN REDITABS [Suspect]
     Indication: PRODUCT USED FOR UNKNOWN INDICATION
     Dosage: 20 MG, ONCE
     Route: 048

REACTIONS (2)
  - Fatigue [Unknown]
  - Overdose [Unknown]
